FAERS Safety Report 11763665 (Version 1)
Quarter: 2015Q4

REPORT INFORMATION
  Report Type: Spontaneous
  Country: US (occurrence: US)
  Receive Date: 20151120
  Receipt Date: 20151120
  Transmission Date: 20160304
  Serious: Yes (Other)
  Sender: FDA-Public Use
  Company Number: US-ELI_LILLY_AND_COMPANY-US201304003470

PATIENT
  Sex: Female

DRUGS (1)
  1. FORTEO [Suspect]
     Active Substance: TERIPARATIDE
     Indication: OSTEOPOROSIS
     Dosage: UNK UNK, QD
     Dates: start: 20130328, end: 20130410

REACTIONS (7)
  - Muscle spasms [Unknown]
  - Discomfort [Unknown]
  - Fall [Unknown]
  - Abasia [Unknown]
  - Back pain [Unknown]
  - Syncope [Unknown]
  - Muscular weakness [Unknown]
